FAERS Safety Report 11278786 (Version 1)
Quarter: 2015Q3

REPORT INFORMATION
  Report Type: Spontaneous
  Country: FR (occurrence: None)
  Receive Date: 20150715
  Receipt Date: 20150715
  Transmission Date: 20151125
  Serious: Yes (Other)
  Sender: FDA-Public Use
  Company Number: INT_00836_2015

PATIENT
  Age: 29 Year
  Sex: Female

DRUGS (5)
  1. DACTINOMYCIN [Suspect]
     Active Substance: DACTINOMYCIN
     Indication: LUNG NEOPLASM
     Dosage: DF
  2. ETOPOSIDE (ETOPOSIDE) [Suspect]
     Active Substance: ETOPOSIDE
     Indication: LUNG NEOPLASM
     Dosage: DF
  3. ACTINOMYCINES (ACTINOMYCIN) [Suspect]
     Active Substance: UNSPECIFIED INGREDIENT
     Indication: LUNG NEOPLASM
     Dosage: DF
  4. METHOTREXATE (METHOTREXATE) [Suspect]
     Active Substance: METHOTREXATE
     Indication: LUNG NEOPLASM
     Dosage: DF
  5. CISPLATINUM [Suspect]
     Active Substance: CISPLATIN
     Indication: LUNG NEOPLASM
     Dosage: DF

REACTIONS (3)
  - Maternal exposure before pregnancy [None]
  - Pregnancy [None]
  - Ovarian failure [None]
